FAERS Safety Report 6178078-7 (Version None)
Quarter: 2009Q2

REPORT INFORMATION
  Report Type: 
  Country: None (occurrence: None)
  Receive Date: 20090504
  Receipt Date: 20090203
  Transmission Date: 20091009
  Serious: No
  Sender: FDA-Public Use
  Company Number: US-ALEXION-A200900097

PATIENT
  Sex: Male

DRUGS (3)
  1. SOLIRIS [Suspect]
     Indication: PAROXYSMAL NOCTURNAL HAEMOGLOBINURIA
     Dosage: UNK
  2. SEROQUEL [Concomitant]
  3. VALPROIC ACID [Concomitant]

REACTIONS (1)
  - AGGRESSION [None]
